FAERS Safety Report 16830768 (Version 1)
Quarter: 2019Q3

REPORT INFORMATION
  Report Type: Spontaneous
  Country: NL (occurrence: NL)
  Receive Date: 20190920
  Receipt Date: 20190920
  Transmission Date: 20191005
  Serious: Yes (Death, Other)
  Sender: FDA-Public Use
  Company Number: NL-ALVOGEN-2019-ALVOGEN-101402

PATIENT
  Age: 58 Year
  Sex: Male

DRUGS (1)
  1. CLINDAMYCIN. [Suspect]
     Active Substance: CLINDAMYCIN
     Indication: SINUSITIS

REACTIONS (5)
  - Haemorrhage intracranial [Fatal]
  - Embolism [Fatal]
  - Vasculitis [Fatal]
  - Drug ineffective [Fatal]
  - Encephalitis [Fatal]
